FAERS Safety Report 14381173 (Version 11)
Quarter: 2018Q3

REPORT INFORMATION
  Report Type: Spontaneous
  Country: CA (occurrence: CA)
  Receive Date: 20180112
  Receipt Date: 20180928
  Transmission Date: 20181010
  Serious: Yes (Other)
  Sender: FDA-Public Use
  Company Number: CA-CELLTRION INC.-2017CA014278

PATIENT

DRUGS (9)
  1. INFLECTRA [Suspect]
     Active Substance: INFLIXIMAB-DYYB
     Dosage: 400 MG, CYCLIC (EVERY (Q) 0, 2, 6 WEEKS, THEN EVERY 8 WEEKS)
     Route: 042
     Dates: start: 20171103
  2. INFLECTRA [Suspect]
     Active Substance: INFLIXIMAB-DYYB
     Dosage: 400 MG, CYCLIC (EVERY (Q) 0, 2, 6 WEEKS, THEN EVERY 8 WEEKS)
     Route: 042
     Dates: start: 20180122
  3. PREDNISONE. [Concomitant]
     Active Substance: PREDNISONE
     Dosage: 40 MG, DAILY
     Route: 048
     Dates: start: 20170718
  4. INFLECTRA [Suspect]
     Active Substance: INFLIXIMAB-DYYB
     Indication: COLITIS ULCERATIVE
     Dosage: 400 MG, CYCLIC (AT 0,2,6 WEEKS THEN EVERY 8 WEEKS)
     Route: 042
     Dates: start: 20170901
  5. INFLECTRA [Suspect]
     Active Substance: INFLIXIMAB-DYYB
     Dosage: 400 MG, CYCLIC (EVERY 4 WEEKS)
     Route: 042
     Dates: start: 20180917
  6. INFLECTRA [Suspect]
     Active Substance: INFLIXIMAB-DYYB
     Dosage: 400 MG, CYCLIC (EVERY 4 WEEKS)
     Route: 042
     Dates: start: 20180814
  7. INFLECTRA [Suspect]
     Active Substance: INFLIXIMAB-DYYB
     Dosage: 400 MG, CYCLIC (EVERY (Q) 0, 2, 6 WEEKS, THEN EVERY 8 WEEKS)
     Route: 042
     Dates: start: 20180319
  8. INFLECTRA [Suspect]
     Active Substance: INFLIXIMAB-DYYB
     Dosage: 5 MG/KG, CYCLIC (EVERY 4 WEEKS)
     Route: 042
     Dates: start: 20180628
  9. ASACOL [Concomitant]
     Active Substance: MESALAMINE
     Dosage: UNK UNK, TID
     Route: 048
     Dates: start: 1998

REACTIONS (27)
  - Unresponsive to stimuli [Unknown]
  - Suicidal ideation [Unknown]
  - Vomiting [Unknown]
  - Influenza [Unknown]
  - Dizziness [Unknown]
  - Lethargy [Unknown]
  - Depressed mood [Unknown]
  - Muscle rigidity [Unknown]
  - Nausea [Unknown]
  - Blood pressure decreased [Unknown]
  - Product use issue [Unknown]
  - Drug level decreased [Unknown]
  - Malaise [Recovered/Resolved]
  - Ligament sprain [Unknown]
  - Drug specific antibody present [Unknown]
  - Fatigue [Unknown]
  - Heart rate decreased [Unknown]
  - Weight increased [Recovered/Resolved]
  - Drug dose omission [Unknown]
  - Eye movement disorder [Unknown]
  - Incoherent [Unknown]
  - Fall [Unknown]
  - Pallor [Unknown]
  - Seizure [Unknown]
  - Condition aggravated [Unknown]
  - Abnormal behaviour [Unknown]
  - Hyperhidrosis [Unknown]

NARRATIVE: CASE EVENT DATE: 201710
